FAERS Safety Report 8212514-7 (Version None)
Quarter: 2012Q1

REPORT INFORMATION
  Report Type: 
  Country: None (occurrence: None)
  Receive Date: 20120315
  Receipt Date: 20120308
  Transmission Date: 20120608
  Serious: Yes (Other)
  Sender: FDA-Public Use
  Company Number: GB-GLAXOSMITHKLINE-B0787224A

PATIENT
  Age: 68 Year
  Sex: Female

DRUGS (8)
  1. SINEMET CR [Concomitant]
  2. SINEMET [Concomitant]
  3. ASPIRIN [Concomitant]
     Dosage: 150MG PER DAY
  4. LANSOPRAZOLE [Concomitant]
  5. REQUIP XL [Suspect]
     Indication: PARKINSON'S DISEASE
     Route: 065
     Dates: start: 20100101
  6. AZILECT [Concomitant]
     Dosage: 1MG PER DAY
  7. ADCAL [Concomitant]
  8. SIMVASTATIN [Concomitant]

REACTIONS (3)
  - PARKINSONISM [None]
  - MEDICATION RESIDUE [None]
  - OFF LABEL USE [None]
